FAERS Safety Report 5606564-4 (Version None)
Quarter: 2008Q1

REPORT INFORMATION
  Report Type: 
  Country: None (occurrence: None)
  Receive Date: 20080129
  Receipt Date: 20080123
  Transmission Date: 20080703
  Serious: Yes (Hospitalization)
  Sender: FDA-Public Use
  Company Number: FR-AVENTIS-200810369FR

PATIENT
  Age: 80 Year
  Sex: Female

DRUGS (18)
  1. LASIX [Suspect]
     Route: 048
     Dates: start: 20070914, end: 20070926
  2. COVERSYL                           /00790701/ [Suspect]
     Route: 048
     Dates: end: 20070923
  3. NOROXIN [Concomitant]
     Route: 048
     Dates: start: 20070919, end: 20070923
  4. NOVONORM [Concomitant]
     Indication: DIABETES MELLITUS
     Route: 048
     Dates: start: 20070914, end: 20070923
  5. DIFFU K [Concomitant]
     Route: 048
     Dates: start: 20070918, end: 20070923
  6. TRINIPATCH [Concomitant]
     Route: 062
     Dates: end: 20070921
  7. LOVENOX 4000 [Concomitant]
     Indication: PROPHYLAXIS
     Route: 042
     Dates: start: 20070917, end: 20070922
  8. MODOPAR 125 [Concomitant]
     Indication: PARKINSON'S DISEASE
     Route: 048
     Dates: start: 20070914, end: 20070926
  9. STILNOX                            /00914901/ [Concomitant]
     Route: 048
  10. MOTILIUM [Concomitant]
     Route: 048
     Dates: start: 20070914, end: 20070917
  11. TOPALGIC LP [Concomitant]
     Route: 048
     Dates: start: 20070914, end: 20070917
  12. LANTUS [Concomitant]
     Indication: DIABETES MELLITUS
     Route: 058
     Dates: start: 20070914
  13. SOTALOL HCL [Concomitant]
     Route: 048
  14. CRESTOR [Concomitant]
     Route: 048
     Dates: start: 20070921
  15. IOPAMIDOL [Concomitant]
     Route: 042
     Dates: start: 20070917, end: 20070917
  16. PLAVIX [Concomitant]
     Route: 048
  17. MOPRAL                             /00661201/ [Concomitant]
     Route: 048
  18. FRACTAL                            /01224501/ [Concomitant]
     Route: 048
     Dates: end: 20070917

REACTIONS (2)
  - DRUG INTERACTION [None]
  - RENAL FAILURE [None]
